FAERS Safety Report 10121227 (Version 1)
Quarter: 2014Q2

REPORT INFORMATION
  Report Type: Spontaneous
  Country: CA (occurrence: CA)
  Receive Date: 20140425
  Receipt Date: 20140425
  Transmission Date: 20141212
  Serious: Yes (Other)
  Sender: FDA-Public Use
  Company Number: CA-BAXTER-2014BAX019506

PATIENT
  Sex: 0

DRUGS (1)
  1. METRONIDAZOLE 5MG/ML INJECTION [Suspect]
     Indication: PRODUCT USED FOR UNKNOWN INDICATION
     Route: 065

REACTIONS (5)
  - Cerebrovascular disorder [Unknown]
  - Dysgeusia [Unknown]
  - Feeling abnormal [Unknown]
  - Head discomfort [Unknown]
  - Headache [Unknown]
